FAERS Safety Report 21895969 (Version 4)
Quarter: 2023Q2

REPORT INFORMATION
  Report Type: Spontaneous
  Country: DE (occurrence: DE)
  Receive Date: 20230123
  Receipt Date: 20230412
  Transmission Date: 20230722
  Serious: Yes (Disabling, Other)
  Sender: FDA-Public Use
  Company Number: DE-BRISTOL-MYERS SQUIBB COMPANY-2023-007032

PATIENT
  Age: 73 Year
  Sex: Male
  Weight: 85 kg

DRUGS (8)
  1. OXALIPLATIN [Suspect]
     Active Substance: OXALIPLATIN
     Indication: Oesophageal adenocarcinoma
     Dosage: 163 MG (FREQUENY: 14)
     Route: 042
     Dates: start: 20220926, end: 20221214
  2. OXALIPLATIN [Suspect]
     Active Substance: OXALIPLATIN
     Indication: Gastric cancer
     Dosage: 167 MG (FREQUENY: 14)
     Route: 042
     Dates: start: 20220926
  3. FLUOROURACIL [Suspect]
     Active Substance: FLUOROURACIL
     Indication: Oesophageal adenocarcinoma
     Dosage: 5018 MG (FREQUENCY: 14, ROUTE: PUMPE)
     Route: 042
     Dates: start: 20220926, end: 20221214
  4. FLUOROURACIL [Suspect]
     Active Substance: FLUOROURACIL
     Indication: Gastric cancer
     Dosage: 5122  MG (FREQUENCY: 14)
     Route: 042
     Dates: start: 20220926
  5. FLUOROURACIL [Suspect]
     Active Substance: FLUOROURACIL
     Dosage: 4992  MG (FREQUENCY: 14 ROUTE: IV PUMPE )
     Route: 042
     Dates: start: 20220926, end: 20221214
  6. OPDIVO [Suspect]
     Active Substance: NIVOLUMAB
     Indication: Oesophageal adenocarcinoma
     Dosage: 240 MG FREQUENCY: 14
     Route: 042
     Dates: start: 20220926, end: 20221214
  7. OPDIVO [Suspect]
     Active Substance: NIVOLUMAB
     Indication: Gastric cancer
  8. GRANISETRON [Concomitant]
     Active Substance: GRANISETRON
     Indication: Prophylaxis
     Dosage: 1 MG FREQUENY: 14 ( BOLUS )
     Route: 040
     Dates: start: 20220926

REACTIONS (3)
  - Autoimmune hepatitis [Recovered/Resolved]
  - Motor dysfunction [Not Recovered/Not Resolved]
  - Paraesthesia [Not Recovered/Not Resolved]

NARRATIVE: CASE EVENT DATE: 20221214
